FAERS Safety Report 20601064 (Version 2)
Quarter: 2022Q1

REPORT INFORMATION
  Report Type: Spontaneous
  Country: CN (occurrence: CN)
  Receive Date: 20220316
  Receipt Date: 20220324
  Transmission Date: 20220423
  Serious: Yes (Other)
  Sender: FDA-Public Use
  Company Number: CN-GLAXOSMITHKLINE-CN2022APC041749

PATIENT
  Age: 41 Year
  Sex: Female

DRUGS (5)
  1. PAROXETINE HYDROCHLORIDE [Suspect]
     Active Substance: PAROXETINE HYDROCHLORIDE
     Indication: Depression
     Dosage: 2 DOSAGE FORM, QD
     Route: 048
     Dates: end: 20180601
  2. PAROXETINE HYDROCHLORIDE [Suspect]
     Active Substance: PAROXETINE HYDROCHLORIDE
     Dosage: 1 DOSAGE FORM, QD
     Route: 048
  3. PAROXETINE HYDROCHLORIDE [Suspect]
     Active Substance: PAROXETINE HYDROCHLORIDE
     Indication: Depression
     Dosage: 2 DOSAGE FORM, QD
     Route: 048
     Dates: start: 20180602
  4. PAROXETINE HYDROCHLORIDE [Suspect]
     Active Substance: PAROXETINE HYDROCHLORIDE
     Dosage: 3 DOSAGE FORM, QD
     Route: 048
     Dates: start: 20180603
  5. DIAZEPAM [Suspect]
     Active Substance: DIAZEPAM
     Indication: Product used for unknown indication
     Dosage: UNK
     Route: 048

REACTIONS (12)
  - Near death experience [Unknown]
  - Injury [Unknown]
  - Drug resistance [Unknown]
  - Off label use [Unknown]
  - Intentional product use issue [Unknown]
  - Inability to afford medication [Unknown]
  - Malaise [Unknown]
  - Palpitations [Unknown]
  - Heart rate increased [Unknown]
  - Asthenia [Unknown]
  - Drug effect less than expected [Unknown]
  - Drug ineffective [Unknown]
